FAERS Safety Report 5712156-9 (Version None)
Quarter: 2008Q2

REPORT INFORMATION
  Report Type: 
  Country: None (occurrence: None)
  Receive Date: 20080418
  Receipt Date: 20080408
  Transmission Date: 20081010
  Serious: Yes (Hospitalization)
  Sender: FDA-Public Use
  Company Number: SP01518

PATIENT
  Age: 58 Year
  Sex: Female
  Weight: 72.5755 kg

DRUGS (8)
  1. OSMOPREP [Suspect]
     Indication: COLONOSCOPY
     Dosage: ORAL
     Route: 048
     Dates: start: 20070326, end: 20070327
  2. AMBIEN [Concomitant]
  3. LISINOPRIL [Concomitant]
  4. ASACOL [Concomitant]
  5. LEVOXYL [Concomitant]
  6. LUVOX [Concomitant]
  7. SINGULAIR [Concomitant]
  8. IBUPROFEN TABLETS [Concomitant]

REACTIONS (23)
  - ANAEMIA [None]
  - ARTERIOSCLEROSIS [None]
  - ASTHENIA [None]
  - BACK PAIN [None]
  - DEHYDRATION [None]
  - DIARRHOEA [None]
  - DISTURBANCE IN ATTENTION [None]
  - DIZZINESS [None]
  - FATIGUE [None]
  - FEELING ABNORMAL [None]
  - HEADACHE [None]
  - KIDNEY FIBROSIS [None]
  - MALAISE [None]
  - NAUSEA [None]
  - NEPHROCALCINOSIS [None]
  - ORAL INTAKE REDUCED [None]
  - OXYGEN SATURATION DECREASED [None]
  - PAIN [None]
  - PALPITATIONS [None]
  - RENAL FAILURE [None]
  - RENAL TUBULAR ATROPHY [None]
  - RENAL TUBULAR DISORDER [None]
  - WEIGHT DECREASED [None]
